FAERS Safety Report 4661181-8 (Version None)
Quarter: 2005Q2

REPORT INFORMATION
  Report Type: 
  Country: None (occurrence: None)
  Receive Date: 20050513
  Receipt Date: 20050502
  Transmission Date: 20051028
  Serious: Yes (Death, Hospitalization)
  Sender: FDA-Public Use
  Company Number: NSADSS2001002463

PATIENT
  Sex: Female
  Weight: 66 kg

DRUGS (7)
  1. REMICADE [Suspect]
     Route: 041
     Dates: start: 20000214
  2. REMICADE [Suspect]
     Route: 041
     Dates: start: 20000214
  3. REMICADE [Suspect]
     Route: 041
     Dates: start: 20000214
  4. REMICADE [Suspect]
     Route: 041
     Dates: start: 20000214
  5. REMICADE [Suspect]
     Indication: RHEUMATOID ARTHRITIS
     Route: 041
     Dates: start: 20000214
  6. METHOTREXATE [Concomitant]
     Indication: RHEUMATOID ARTHRITIS
     Route: 065
     Dates: start: 19980101
  7. NAPROSYN [Concomitant]
     Indication: RHEUMATOID ARTHRITIS
     Route: 065
     Dates: start: 19950101

REACTIONS (7)
  - COMA [None]
  - CONFUSIONAL STATE [None]
  - DEMYELINATION [None]
  - HYPOKALAEMIA [None]
  - HYPONATRAEMIA [None]
  - LEUKOENCEPHALOPATHY [None]
  - SYNCOPE [None]
